FAERS Safety Report 5060343-8 (Version None)
Quarter: 2006Q3

REPORT INFORMATION
  Report Type: 
  Country: None (occurrence: None)
  Receive Date: 20060718
  Receipt Date: 20060710
  Transmission Date: 20061208
  Serious: Yes (Hospitalization)
  Sender: FDA-Public Use
  Company Number: TPA2005A01467

PATIENT
  Age: 71 Year
  Sex: Male
  Weight: 98.4 kg

DRUGS (5)
  1. PIOGLITAZONE HYDROCHLORIDE (CODE NOT BROKEN) (PIOGLITAZONE HYDROCHLORI [Suspect]
     Indication: GLUCOSE TOLERANCE IMPAIRED
     Dosage: 1 IN 1 D, PER ORAL
     Route: 048
     Dates: start: 20041029
  2. VA ARTHRITIS STUDY ANTI-INFLAMATORY MEDICATION (ANTIFLAMMATION/ANTIRHE [Suspect]
     Indication: ARTHRITIS
     Dates: end: 20050911
  3. ZOCOR [Concomitant]
  4. PLAVIX [Concomitant]
  5. LISINOPRIL [Concomitant]

REACTIONS (6)
  - CHEST X-RAY ABNORMAL [None]
  - DUODENAL ULCER [None]
  - MELAENA [None]
  - ORTHOSTATIC HYPOTENSION [None]
  - RENAL FAILURE [None]
  - SYNCOPE [None]
